FAERS Safety Report 19856212 (Version 1)
Quarter: 2021Q3

REPORT INFORMATION
  Report Type: Spontaneous
  Country: DE (occurrence: DE)
  Receive Date: 20210920
  Receipt Date: 20210920
  Transmission Date: 20211014
  Serious: Yes (Hospitalization)
  Sender: FDA-Public Use
  Company Number: DE-TEVA-2021-DE-1952778

PATIENT
  Age: 86 Year
  Sex: Female
  Weight: 68 kg

DRUGS (9)
  1. TORASEMID [Suspect]
     Active Substance: TORSEMIDE
     Dosage: 50 MILLIGRAM DAILY;  1?0?0?0
  2. COLECALCIFEROL (VITAMIN D)/RETINOL (VITAMIN A) [Concomitant]
     Dosage: 140 MCG, SCHEME
  3. RAMIPRIL. [Suspect]
     Active Substance: RAMIPRIL
     Dosage: 5 MG, 1?0?0.5?0
  4. BISOPROLOL [Suspect]
     Active Substance: BISOPROLOL
     Dosage: 10 MILLIGRAM DAILY;  1?0?1?0
  5. APIXABAN [Concomitant]
     Active Substance: APIXABAN
     Dosage: 5 MILLIGRAM DAILY;   1?0?1?0
  6. SIMVASTATIN. [Concomitant]
     Active Substance: SIMVASTATIN
     Dosage: 20 MILLIGRAM DAILY;  0?0?1?0
  7. SPIRONOLACTON [Suspect]
     Active Substance: SPIRONOLACTONE
     Dosage: 50 MILLIGRAM DAILY;  1?0?0?0
  8. TILIDINE/NALOXONE [Concomitant]
     Active Substance: NALOXONE HYDROCHLORIDE\TILIDINE HYDROCHLORIDE
     Dosage: 60 DOSAGE FORMS DAILY; 4|50 MG, 20?20?20?0
  9. ALENDRONSAURE [Concomitant]
     Active Substance: ALENDRONIC ACID
     Dosage: 70 MG, SCHEME

REACTIONS (11)
  - General physical health deterioration [Unknown]
  - Electrocardiogram abnormal [Unknown]
  - Systemic infection [Unknown]
  - Atrial fibrillation [Unknown]
  - Renal impairment [Unknown]
  - Anaemia [Unknown]
  - Oedema peripheral [Unknown]
  - Hyperkalaemia [Unknown]
  - Skin irritation [Unknown]
  - Weight increased [Unknown]
  - Tachycardia [Unknown]
